FAERS Safety Report 8613018-X (Version None)
Quarter: 2012Q3

REPORT INFORMATION
  Report Type: 
  Country: None (occurrence: None)
  Receive Date: 20120822
  Receipt Date: 20120809
  Transmission Date: 20120928
  Serious: Yes (Other)
  Sender: FDA-Public Use
  Company Number: JP-VERTEX PHARMACEUTICAL INC.-2012-019680

PATIENT
  Age: 56 Year
  Sex: Male

DRUGS (13)
  1. PEGINTERFERON ALFA-2B [Concomitant]
     Indication: HEPATITIS C
     Dosage: 1.5 A?G/KG, UNK
     Route: 058
     Dates: start: 20120508, end: 20120521
  2. VX-950 [Suspect]
     Indication: HEPATITIS C
     Dosage: 1500 MG, QD
     Route: 048
     Dates: start: 20120508
  3. DOMPERIDONE [Concomitant]
     Route: 048
  4. ALLOPURINOL [Concomitant]
     Dosage: 100 MG, UNK
     Route: 048
     Dates: start: 20120510
  5. OHNES ST [Concomitant]
     Route: 048
  6. RIBAVIRIN [Concomitant]
     Dosage: 400 UNK, UNK
     Route: 048
     Dates: start: 20120703
  7. SORASILOL [Concomitant]
     Route: 048
  8. RIBAVIRIN [Concomitant]
     Indication: HEPATITIS C
     Dosage: 800 MG, QD
     Route: 048
     Dates: start: 20120508, end: 20120528
  9. COLEPOLI-R [Concomitant]
     Route: 048
  10. DIANAMIX [Concomitant]
     Route: 048
  11. ALLOPURINOL [Concomitant]
     Dosage: 100 MG, UNK
     Route: 048
     Dates: start: 20120510
  12. RIBAVIRIN [Concomitant]
     Dosage: 600 MG, QD
     Route: 048
     Dates: start: 20120529, end: 20120702
  13. PEGINTERFERON ALFA-2B [Concomitant]
     Dosage: 0.75 A?G/KG, UNK
     Route: 058
     Dates: start: 20120522

REACTIONS (1)
  - HYPOGLYCAEMIA [None]
